FAERS Safety Report 17386587 (Version 3)
Quarter: 2020Q2

REPORT INFORMATION
  Report Type: Report from Study
  Country: BR (occurrence: BR)
  Receive Date: 20200206
  Receipt Date: 20200611
  Transmission Date: 20200713
  Serious: Yes (Life-Threatening, Other)
  Sender: FDA-Public Use
  Company Number: NVSC2020BR028010

PATIENT
  Age: 58 Year
  Sex: Female
  Weight: 120 kg

DRUGS (2)
  1. FRONTAL [Suspect]
     Active Substance: ALPRAZOLAM
     Indication: PRODUCT USED FOR UNKNOWN INDICATION
     Dosage: 0.5 OT, QD (USED 16 TABLETS)
     Route: 065
  2. DIOVAN HCT [Suspect]
     Active Substance: HYDROCHLOROTHIAZIDE\VALSARTAN
     Indication: BLOOD PRESSURE ABNORMAL
     Dosage: 1 DF, QD
     Route: 048

REACTIONS (19)
  - Headache [Not Recovered/Not Resolved]
  - Scab [Unknown]
  - Pruritus [Unknown]
  - Neck pain [Not Recovered/Not Resolved]
  - Insomnia [Unknown]
  - Sleep disorder due to general medical condition, hypersomnia type [Not Recovered/Not Resolved]
  - Mental disorder [Not Recovered/Not Resolved]
  - Renal failure [Not Recovered/Not Resolved]
  - Drug dependence [Unknown]
  - Stress [Not Recovered/Not Resolved]
  - Tension [Not Recovered/Not Resolved]
  - Depressed mood [Unknown]
  - Suicide attempt [Unknown]
  - Weight increased [Not Recovered/Not Resolved]
  - Blood pressure abnormal [Not Recovered/Not Resolved]
  - Depression [Not Recovered/Not Resolved]
  - Crying [Not Recovered/Not Resolved]
  - Therapeutic response unexpected [Unknown]
  - Memory impairment [Not Recovered/Not Resolved]

NARRATIVE: CASE EVENT DATE: 201607
